FAERS Safety Report 5994907-1 (Version None)
Quarter: 2008Q4

REPORT INFORMATION
  Report Type: 
  Country: None (occurrence: None)
  Receive Date: 20081212
  Receipt Date: 20081205
  Transmission Date: 20090506
  Serious: Yes (Hospitalization, Other)
  Sender: FDA-Public Use
  Company Number: US-ABBOTT-08P-163-0491418-00

PATIENT
  Sex: Male
  Weight: 63.56 kg

DRUGS (2)
  1. HUMIRA [Suspect]
     Indication: PSORIASIS
     Route: 058
     Dates: start: 20080825
  2. HUMIRA [Suspect]
     Indication: PSORIATIC ARTHROPATHY

REACTIONS (9)
  - ANAEMIA [None]
  - BACTERIAL TOXAEMIA [None]
  - CELLULITIS [None]
  - HERPES VIRUS INFECTION [None]
  - LYMPHADENOPATHY [None]
  - PYREXIA [None]
  - RASH [None]
  - RASH PUSTULAR [None]
  - SELECTIVE IGA IMMUNODEFICIENCY [None]
